FAERS Safety Report 5303014-2 (Version None)
Quarter: 2007Q2

REPORT INFORMATION
  Report Type: 
  Country: None (occurrence: None)
  Receive Date: 20070413
  Receipt Date: 20070330
  Transmission Date: 20071010
  Serious: Yes (Hospitalization)
  Sender: FDA-Public Use
  Company Number: 07-000733

PATIENT
  Age: 49 Year
  Sex: Female
  Weight: 76.2 kg

DRUGS (2)
  1. LOESTRIN 24 FE [Suspect]
     Indication: OVARIAN CYST
     Dosage: 20/1000 UG, QD; ORAL
     Route: 048
     Dates: start: 20061001
  2. VITAMINS [Concomitant]

REACTIONS (4)
  - ABDOMINAL DISTENSION [None]
  - JOINT SWELLING [None]
  - MUSCLE TWITCHING [None]
  - WEIGHT INCREASED [None]
